FAERS Safety Report 8422100-1 (Version None)
Quarter: 2012Q2

REPORT INFORMATION
  Report Type: 
  Country: None (occurrence: None)
  Receive Date: 20120323
  Receipt Date: 20110208
  Transmission Date: 20120825
  Serious: Yes (Other)
  Sender: FDA-Public Use
  Company Number: 163-21880-11021368

PATIENT
  Sex: Female

DRUGS (2)
  1. TARCEVA [Concomitant]
  2. REVLIMID [Suspect]
     Indication: MULTIPLE MYELOMA
     Dosage: 5 MG, 1 IN 1 D, PO
     Route: 048
     Dates: start: 20061115

REACTIONS (3)
  - FURUNCLE [None]
  - HAEMORRHAGE [None]
  - INFECTION [None]
